FAERS Safety Report 8343945-2 (Version None)
Quarter: 2012Q2

REPORT INFORMATION
  Report Type: 
  Country: None (occurrence: None)
  Receive Date: 20120508
  Receipt Date: 20120503
  Transmission Date: 20120825
  Serious: Yes (Hospitalization)
  Sender: FDA-Public Use
  Company Number: CA-AMGEN-CANCT2012021179

PATIENT
  Age: 56 Year
  Sex: Male

DRUGS (5)
  1. VITAMIN D [Concomitant]
     Dosage: UNK UNK, BID
     Route: 048
     Dates: start: 20100723
  2. CALCIUM [Concomitant]
     Dosage: 500 MG, BID
     Route: 048
     Dates: start: 20100723
  3. DENOSUMAB [Suspect]
     Indication: BONE GIANT CELL TUMOUR
     Dosage: UNK UNK, QMO
     Route: 058
     Dates: start: 20100723
  4. TYLENOL (CAPLET) [Concomitant]
     Dosage: 500 MG, PRN
     Route: 048
     Dates: start: 20100725
  5. HYDROMORPHONE HCL [Concomitant]
     Dosage: UNK
     Route: 048
     Dates: start: 20100519

REACTIONS (1)
  - PAIN IN EXTREMITY [None]
